FAERS Safety Report 4406235-6 (Version None)
Quarter: 2004Q3

REPORT INFORMATION
  Report Type: 
  Country: None (occurrence: None)
  Receive Date: 20040716
  Receipt Date: 20040708
  Transmission Date: 20050211
  Serious: Yes (Hospitalization)
  Sender: FDA-Public Use
  Company Number: JP-JNJFOC-20040701038

PATIENT
  Age: 15 Year
  Sex: Female
  Weight: 54 kg

DRUGS (3)
  1. LEVOFLOXACIN [Suspect]
     Indication: NASOPHARYNGITIS
     Dosage: 100 MG, 3 IN 1 DAY, ORAL
     Route: 048
     Dates: start: 20040620, end: 20040626
  2. PONTAL (MEFENAMIC ACID) [Concomitant]
  3. EMPTYNASE(EMPYNASE ACID) [Concomitant]

REACTIONS (9)
  - BLOOD POTASSIUM DECREASED [None]
  - CHILLS [None]
  - DECREASED APPETITE [None]
  - DYSMENORRHOEA [None]
  - FATIGUE [None]
  - FLUID INTAKE REDUCED [None]
  - INFECTION [None]
  - OEDEMA PERIPHERAL [None]
  - RHABDOMYOLYSIS [None]
